FAERS Safety Report 6476736-8 (Version None)
Quarter: 2009Q4

REPORT INFORMATION
  Report Type: 
  Country: None (occurrence: None)
  Receive Date: 20091207
  Receipt Date: 20091125
  Transmission Date: 20100525
  Serious: Yes (Hospitalization, Other)
  Sender: FDA-Public Use
  Company Number: PHHY2009MX44692

PATIENT
  Sex: Female

DRUGS (1)
  1. DIOVAN [Suspect]
     Indication: HYPERTENSION
     Dosage: 160 MG, QD
     Route: 048
     Dates: start: 20050801

REACTIONS (4)
  - BILE DUCT STONE [None]
  - CHOLELITHIASIS [None]
  - CHOLELITHOTOMY [None]
  - GASTROINTESTINAL INFLAMMATION [None]
